FAERS Safety Report 8707585 (Version 2)
Quarter: 2013Q4

REPORT INFORMATION
  Report Type: Spontaneous
  Country: US (occurrence: US)
  Receive Date: 20120805
  Receipt Date: 20131031
  Transmission Date: 20140711
  Serious: No
  Sender: FDA-Public Use
  Company Number: US-009507513-2012SP028651

PATIENT
  Age: 15 Year
  Sex: Male

DRUGS (3)
  1. CLARITIN-D [Suspect]
     Indication: RESPIRATORY TRACT CONGESTION
     Dosage: 5 MG, Q12H
     Route: 048
     Dates: start: 20120331
  2. CLARITIN-D [Suspect]
     Indication: HYPERSENSITIVITY
  3. CLARITIN-D [Suspect]
     Indication: MEDICAL OBSERVATION

REACTIONS (1)
  - No therapeutic response [Unknown]
